FAERS Safety Report 19605374 (Version 1)
Quarter: 2021Q3

REPORT INFORMATION
  Report Type: Spontaneous
  Country: AU (occurrence: AU)
  Receive Date: 20210723
  Receipt Date: 20210723
  Transmission Date: 20211014
  Serious: Yes (Death, Hospitalization)
  Sender: FDA-Public Use
  Company Number: AU-PFIZER INC-4415

PATIENT
  Age: 58 Year
  Sex: Female

DRUGS (10)
  1. ROXITHROMYCIN [Concomitant]
     Active Substance: ROXITHROMYCIN
     Dosage: 150 MG, UNK
     Route: 065
     Dates: start: 20020503
  2. VINBLASTINE [Suspect]
     Active Substance: VINBLASTINE
     Dosage: 9 MG, FREQ: PRN
     Route: 030
     Dates: start: 20020222, end: 20020711
  3. SOTALOL. [Concomitant]
     Active Substance: SOTALOL
     Dosage: 80 MG, UNK
     Route: 065
     Dates: start: 20020301
  4. BLEOMYCIN SULFATE [Suspect]
     Active Substance: BLEOMYCIN SULFATE
     Indication: HODGKIN^S DISEASE
     Dosage: FREQ: PER_CYCLE
     Route: 042
     Dates: start: 20020222, end: 20020711
  5. DAUNORUBICIN HCL [Suspect]
     Active Substance: DAUNORUBICIN HYDROCHLORIDE
     Dosage: 40 MG, FREQ: PRN
     Route: 042
     Dates: start: 20020222, end: 20020711
  6. CEPHALEXIN. [Concomitant]
     Active Substance: CEPHALEXIN
     Dosage: 500 MG, FREQ: FREQ UNK
     Route: 065
     Dates: start: 20020503
  7. VALACICLOVIR [Concomitant]
     Active Substance: VALACYCLOVIR HYDROCHLORIDE
     Dosage: 500 MG, UNK
     Route: 065
     Dates: start: 20020705
  8. AUGMENTIN DUO FORTE [Concomitant]
     Active Substance: AMOXICILLIN\CLAVULANATE POTASSIUM
     Dosage: FREQ: FREQ UNK
     Route: 065
     Dates: start: 20020604
  9. DACARBAZINE. [Suspect]
     Active Substance: DACARBAZINE
     Dosage: 590 MG, FREQ: PRN
     Route: 042
     Dates: start: 20020222, end: 20020711
  10. FILGRASTIM [Concomitant]
     Active Substance: FILGRASTIM
     Dosage: 300 UG, FREQ: PER_CYCLE
     Route: 065
     Dates: start: 20020308

REACTIONS (4)
  - Pulmonary toxicity [Fatal]
  - Respiratory failure [Fatal]
  - Pulmonary fibrosis [Fatal]
  - Hypotension [Fatal]

NARRATIVE: CASE EVENT DATE: 20020726
